FAERS Safety Report 22037406 (Version 1)
Quarter: 2023Q1

REPORT INFORMATION
  Report Type: Spontaneous
  Country: ES (occurrence: ES)
  Receive Date: 20230226
  Receipt Date: 20230226
  Transmission Date: 20230418
  Serious: Yes (Life-Threatening, Hospitalization, Other)
  Sender: FDA-Public Use
  Company Number: None

PATIENT
  Age: 61 Year
  Sex: Female

DRUGS (4)
  1. DOXORUBICIN [Interacting]
     Active Substance: DOXORUBICIN
     Indication: Hodgkin^s disease
     Dosage: (202A), 39 MILLIGRAMS (25MG/M2), 30 MG, 1 CYCLICAL
     Route: 042
     Dates: start: 20221128, end: 20230131
  2. DACARBAZINE [Interacting]
     Active Substance: DACARBAZINE
     Indication: Hodgkin^s disease
     Dosage: 585 MILLIGRAMS (375MG/M2)
     Route: 042
     Dates: start: 20221128, end: 20230131
  3. VINBLASTINE SULFATE [Interacting]
     Active Substance: VINBLASTINE SULFATE
     Indication: Hodgkin^s disease
     Dosage: 9.36 MILLIGRAMS (6MG/M2), 9.35 MG, 1 CYCLICAL
     Route: 042
     Dates: start: 20221128, end: 20230131
  4. BLEOMYCIN [Interacting]
     Active Substance: BLEOMYCIN SULFATE
     Indication: Hodgkin^s disease
     Dosage: 15.6 UI (10UI/M2)
     Route: 042
     Dates: start: 20221128, end: 20230131

REACTIONS (2)
  - Agranulocytosis [Recovered/Resolved]
  - Pyrexia [Recovered/Resolved]

NARRATIVE: CASE EVENT DATE: 20230209
